FAERS Safety Report 5193680-7 (Version None)
Quarter: 2006Q4

REPORT INFORMATION
  Report Type: 
  Country: None (occurrence: None)
  Receive Date: 20061222
  Receipt Date: 20061206
  Transmission Date: 20070319
  Serious: Yes (Hospitalization)
  Sender: FDA-Public Use
  Company Number: PRI050412006041

PATIENT
  Age: 73 Year
  Sex: Male
  Weight: 83.0083 kg

DRUGS (7)
  1. BEVACIZUMAB [Suspect]
     Indication: COLORECTAL CANCER METASTATIC
     Dosage: 465MG IV Q 14 DAYS
     Dates: start: 20060329, end: 20061101
  2. FLUOROURACIL [Suspect]
     Indication: COLORECTAL CANCER METASTATIC
     Dosage: 5160MG IV Q 14 DAYS
     Dates: start: 20060329, end: 20061101
  3. CORTISONE ACETATE [Concomitant]
  4. FLUDRACORT [Concomitant]
  5. COUMADIN [Concomitant]
  6. CIPRO [Concomitant]
  7. PROSCAR [Concomitant]

REACTIONS (7)
  - ADHESION [None]
  - BLOOD POTASSIUM DECREASED [None]
  - HAEMATOCRIT DECREASED [None]
  - HAEMOGLOBIN DECREASED [None]
  - PERITONEAL NEOPLASM [None]
  - SMALL INTESTINAL OBSTRUCTION [None]
  - WHITE BLOOD CELL COUNT DECREASED [None]
